FAERS Safety Report 6198428-5 (Version None)
Quarter: 2009Q2

REPORT INFORMATION
  Report Type: 
  Country: None (occurrence: None)
  Receive Date: 20090521
  Receipt Date: 20090514
  Transmission Date: 20091009
  Serious: Yes (Hospitalization)
  Sender: FDA-Public Use
  Company Number: FR-BRISTOL-MYERS SQUIBB COMPANY-14631980

PATIENT
  Age: 24 Year
  Sex: Female

DRUGS (5)
  1. AZACTAM [Suspect]
     Indication: CYSTIC FIBROSIS
     Route: 042
     Dates: start: 20081001
  2. AMIKACIN SULFATE [Suspect]
  3. NEBCIN [Suspect]
     Indication: CYSTIC FIBROSIS
     Dosage: SOLUTION
     Route: 042
     Dates: start: 20081001, end: 20081001
  4. COLIMYCINE [Suspect]
     Indication: CYSTIC FIBROSIS
     Route: 065
     Dates: start: 20081001
  5. FORTUM [Suspect]
     Indication: CYSTIC FIBROSIS
     Route: 065

REACTIONS (9)
  - CHILLS [None]
  - DIZZINESS [None]
  - FATIGUE [None]
  - HEADACHE [None]
  - MALAISE [None]
  - MYALGIA [None]
  - RASH [None]
  - SOMNOLENCE [None]
  - VOMITING [None]
